FAERS Safety Report 9393698 (Version 1)
Quarter: 2013Q3

REPORT INFORMATION
  Report Type: Spontaneous
  Country: TR (occurrence: None)
  Receive Date: 20130705
  Receipt Date: 20130705
  Transmission Date: 20140515
  Serious: Yes (Hospitalization)
  Sender: FDA-Public Use
  Company Number: NSR_01171_2013

PATIENT
  Age: 48 Year
  Sex: Female

DRUGS (2)
  1. VENLAFAXINE (VENLAFAXINE) [Suspect]
     Indication: DEPRESSED MOOD
  2. REPETITIVE TRANSCRANIAL MAGNETIC STIMULATION [Suspect]
     Indication: ANTIDEPRESSANT THERAPY
     Dosage: (25 HZ, 1000 PULSES, 100% MT, LDLPFC), (1 HZ, PULSES, RDLPFC)

REACTIONS (4)
  - Euphoric mood [None]
  - Insomnia [None]
  - Energy increased [None]
  - Speech disorder [None]
